FAERS Safety Report 15371632 (Version 1)
Quarter: 2018Q3

REPORT INFORMATION
  Report Type: Spontaneous
  Country: ES (occurrence: ES)
  Receive Date: 20180911
  Receipt Date: 20180911
  Transmission Date: 20181010
  Serious: Yes (Other)
  Sender: FDA-Public Use
  Company Number: PHHY2018ES090823

PATIENT
  Age: 39 Year
  Sex: Female

DRUGS (2)
  1. ZOLPIDEM [Suspect]
     Active Substance: ZOLPIDEM\ZOLPIDEM TARTRATE
     Indication: INSOMNIA
  2. ZOLPIDEM [Suspect]
     Active Substance: ZOLPIDEM\ZOLPIDEM TARTRATE
     Indication: MAJOR DEPRESSION
     Dosage: 2 DF, QHS
     Route: 065

REACTIONS (6)
  - Abnormal behaviour [Recovered/Resolved]
  - Weight increased [Recovered/Resolved]
  - Anterograde amnesia [Recovered/Resolved]
  - Thermal burn [Unknown]
  - Abnormal sleep-related event [Recovered/Resolved]
  - Sleep-related eating disorder [Recovered/Resolved]
